FAERS Safety Report 9995099 (Version 4)
Quarter: 2014Q2

REPORT INFORMATION
  Report Type: Spontaneous
  Country: JP (occurrence: JP)
  Receive Date: 20140311
  Receipt Date: 20140523
  Transmission Date: 20141212
  Serious: Yes (Death, Hospitalization, Other)
  Sender: FDA-Public Use
  Company Number: JP-ELI_LILLY_AND_COMPANY-JP201403001487

PATIENT
  Age: 83 Year
  Sex: Female

DRUGS (6)
  1. CYMBALTA [Suspect]
     Indication: DEPRESSION
     Dosage: 20 MG, QD
     Route: 048
     Dates: start: 20140214, end: 20140219
  2. WARFARIN POTASSIUM [Interacting]
     Indication: DEEP VEIN THROMBOSIS
     Dosage: 1.5 MG, QD
     Route: 048
     Dates: start: 20131226, end: 20131226
  3. WARFARIN POTASSIUM [Interacting]
     Dosage: 1 MG, QD
     Route: 048
     Dates: start: 20131227, end: 20140219
  4. FAMOSTAGINE [Concomitant]
     Indication: DUODENAL ULCER
     Dosage: 20 MG, QD
     Route: 048
     Dates: start: 20140124
  5. NORVASC [Concomitant]
     Indication: HYPERTENSION
     Dosage: 5 MG, QD
     Route: 048
     Dates: start: 20110515
  6. AMAZOLON [Concomitant]
     Indication: ABULIA
     Dosage: 100 MG, QD
     Route: 048
     Dates: start: 20131227

REACTIONS (6)
  - Marasmus [Fatal]
  - Renal impairment [Unknown]
  - Fluid intake reduced [Unknown]
  - International normalised ratio increased [Recovering/Resolving]
  - Drug interaction [Recovering/Resolving]
  - Decreased appetite [Unknown]
